FAERS Safety Report 7783537-7 (Version None)
Quarter: 2011Q3

REPORT INFORMATION
  Report Type: 
  Country: None (occurrence: None)
  Receive Date: 20110928
  Receipt Date: 20110928
  Transmission Date: 20111222
  Serious: Yes (Other)
  Sender: FDA-Public Use
  Company Number: None

PATIENT
  Sex: Female
  Weight: 68.946 kg

DRUGS (2)
  1. CYMBALTA [Suspect]
     Indication: ANXIETY
     Dosage: 60 MGS
     Route: 048
     Dates: start: 20010310, end: 20110927
  2. CYMBALTA [Suspect]
     Indication: BIPOLAR DISORDER
     Dosage: 60 MGS
     Route: 048
     Dates: start: 20010310, end: 20110927

REACTIONS (30)
  - HALLUCINATION [None]
  - DEPRESSION [None]
  - HYPERHIDROSIS [None]
  - INSOMNIA [None]
  - AMNESIA [None]
  - GASTROINTESTINAL DISORDER [None]
  - ANXIETY [None]
  - DISTURBANCE IN ATTENTION [None]
  - FATIGUE [None]
  - PALPITATIONS [None]
  - APHASIA [None]
  - DIZZINESS [None]
  - PAIN IN JAW [None]
  - THINKING ABNORMAL [None]
  - BACK PAIN [None]
  - BRUXISM [None]
  - SUICIDAL IDEATION [None]
  - SUICIDAL BEHAVIOUR [None]
  - MOOD SWINGS [None]
  - DECREASED APPETITE [None]
  - TIC [None]
  - DIARRHOEA [None]
  - PARAESTHESIA [None]
  - BRADYPHRENIA [None]
  - VERTIGO [None]
  - MIGRAINE [None]
  - NECK PAIN [None]
  - SLEEP TERROR [None]
  - INFLUENZA LIKE ILLNESS [None]
  - INCONTINENCE [None]
